FAERS Safety Report 26098096 (Version 1)
Quarter: 2025Q4

REPORT INFORMATION
  Report Type: Spontaneous
  Country: US (occurrence: US)
  Receive Date: 20251127
  Receipt Date: 20251127
  Transmission Date: 20260118
  Serious: Yes (Hospitalization, Other)
  Sender: JOHNSON AND JOHNSON
  Company Number: US-JNJFOC-20251164171

PATIENT
  Sex: Male

DRUGS (1)
  1. CARVYKTI [Suspect]
     Active Substance: CILTACABTAGENE AUTOLEUCEL
     Indication: Product used for unknown indication
     Route: 065

REACTIONS (5)
  - Trigeminal palsy [Recovering/Resolving]
  - Cytokine release syndrome [Unknown]
  - VIth nerve paralysis [Recovering/Resolving]
  - Facial paralysis [Recovering/Resolving]
  - Lymphocyte count increased [Unknown]
